FAERS Safety Report 19393992 (Version 1)
Quarter: 2021Q2

REPORT INFORMATION
  Report Type: Spontaneous
  Country: GB (occurrence: GB)
  Receive Date: 20210608
  Receipt Date: 20210608
  Transmission Date: 20210717
  Serious: Yes (Life-Threatening, Disabling)
  Sender: FDA-Public Use
  Company Number: None

PATIENT
  Age: 25 Year
  Sex: Male
  Weight: 75 kg

DRUGS (3)
  1. MINOXIDIL 5 PERCENT TOPICAL SOLUTION [Suspect]
     Active Substance: MINOXIDIL
     Indication: HAIR DISORDER
     Dosage: ?          OTHER STRENGTH:5% SOLUTION;QUANTITY:1 ML;?
     Route: 061
  2. ACCUTANE [Concomitant]
     Active Substance: ISOTRETINOIN
  3. SALBUTAMOL [Concomitant]
     Active Substance: ALBUTEROL

REACTIONS (15)
  - Palpitations [None]
  - Coordination abnormal [None]
  - Flatulence [None]
  - Headache [None]
  - Haemorrhage [None]
  - Constipation [None]
  - Pruritus [None]
  - Pain [None]
  - Haematochezia [None]
  - Tinnitus [None]
  - Dysphagia [None]
  - Skin disorder [None]
  - Muscular weakness [None]
  - Abdominal distension [None]
  - Hypoaesthesia [None]

NARRATIVE: CASE EVENT DATE: 20160415
